FAERS Safety Report 5401760-3 (Version None)
Quarter: 2007Q3

REPORT INFORMATION
  Report Type: 
  Country: None (occurrence: None)
  Receive Date: 20070731
  Receipt Date: 20070719
  Transmission Date: 20080115
  Serious: Yes (Hospitalization)
  Sender: FDA-Public Use
  Company Number: HQWYE234426JUL07

PATIENT
  Age: 82 Year
  Sex: Male

DRUGS (12)
  1. OROKEN [Suspect]
     Dosage: 200 MG DAILY
     Route: 049
     Dates: start: 20070512, end: 20070515
  2. NOROXIN [Suspect]
     Indication: RENAL COLIC
     Dosage: 400 MG DAILY
     Route: 048
     Dates: start: 20070507, end: 20070511
  3. ROCEPHIN [Suspect]
     Indication: RENAL COLIC
     Dosage: 1 G DAILY
     Route: 042
     Dates: start: 20070514, end: 20070515
  4. ORELOX [Suspect]
     Indication: INFECTION
     Dosage: 200 MG DAILY
     Route: 048
     Dates: start: 20070516, end: 20070517
  5. DOLIPRANE [Concomitant]
     Indication: RENAL COLIC
     Dosage: UNKNOWN
     Dates: start: 20070505
  6. CORDARONE [Concomitant]
  7. ASPEGIC 325 [Concomitant]
  8. AMLODIPINE [Concomitant]
  9. SPASFON [Concomitant]
     Indication: RENAL COLIC
     Dosage: UNKNOWN
     Dates: start: 20070505
  10. OFLOCET [Suspect]
     Indication: RENAL COLIC
     Dosage: 200 MG DAILY
     Route: 042
     Dates: start: 20070505, end: 20070506
  11. OFLOCET [Suspect]
     Dosage: 200 MG DAILY
     Route: 042
     Dates: start: 20070512, end: 20070513
  12. HYZAAR [Concomitant]

REACTIONS (2)
  - ASTHENIA [None]
  - CLOSTRIDIUM DIFFICILE COLITIS [None]
